FAERS Safety Report 9817203 (Version 1)
Quarter: 2014Q1

REPORT INFORMATION
  Report Type: Report from Study
  Country: CA (occurrence: CA)
  Receive Date: 20140114
  Receipt Date: 20140114
  Transmission Date: 20141002
  Serious: Yes (Death)
  Sender: FDA-Public Use
  Company Number: CA-ROCHE-1332872

PATIENT
  Sex: Female
  Weight: 94.3 kg

DRUGS (4)
  1. XELODA [Suspect]
     Indication: BILIARY CANCER METASTATIC
     Route: 048
     Dates: start: 201307
  2. HYDROMORPHONE [Concomitant]
  3. TRAZODONE [Concomitant]
  4. TYLENOL #2 (CANADA) [Concomitant]

REACTIONS (1)
  - Death [Fatal]
